FAERS Safety Report 15612066 (Version 1)
Quarter: 2018Q4

REPORT INFORMATION
  Report Type: Spontaneous
  Country: US (occurrence: US)
  Receive Date: 20181113
  Receipt Date: 20181113
  Transmission Date: 20190205
  Serious: No
  Sender: FDA-Public Use
  Company Number: US-SA-2018SA310923

PATIENT
  Age: 46 Year

DRUGS (2)
  1. LUMIZYME [Suspect]
     Active Substance: ALGLUCOSIDASE ALFA
     Indication: GLYCOGEN STORAGE DISEASE TYPE II
     Dosage: 20 MG/KG, QOW
     Route: 041
     Dates: start: 201011
  2. METOPROLOL. [Concomitant]
     Active Substance: METOPROLOL
     Indication: TACHYARRHYTHMIA
     Dosage: 25 MG, BID

REACTIONS (1)
  - Antibody test abnormal [Unknown]

NARRATIVE: CASE EVENT DATE: 201808
